FAERS Safety Report 22184803 (Version 1)
Quarter: 2023Q2

REPORT INFORMATION
  Report Type: Spontaneous
  Country: US (occurrence: US)
  Receive Date: 20230407
  Receipt Date: 20230407
  Transmission Date: 20230722
  Serious: No
  Sender: FDA-Public Use
  Company Number: US-drreddys-SPO/USA/23/0161271

PATIENT
  Age: 72 Year
  Sex: Female

DRUGS (1)
  1. DOCETAXEL [Suspect]
     Active Substance: DOCETAXEL
     Indication: Lung adenocarcinoma
     Dosage: 3 CYCLICAL
     Route: 042

REACTIONS (4)
  - Infusion site plaque [Recovering/Resolving]
  - Dysaesthesia [Recovering/Resolving]
  - Fixed eruption [Recovering/Resolving]
  - Toxic erythema of chemotherapy [Recovering/Resolving]
